FAERS Safety Report 23920218 (Version 1)
Quarter: 2024Q2

REPORT INFORMATION
  Report Type: Spontaneous
  Country: US (occurrence: None)
  Receive Date: 20240530
  Receipt Date: 20240530
  Transmission Date: 20240715
  Serious: No
  Sender: FDA-Public Use
  Company Number: None

PATIENT

DRUGS (2)
  1. TRANEXAMIC ACID [Suspect]
     Active Substance: TRANEXAMIC ACID
     Route: 042
  2. CALCIUM GLUCONATE [Suspect]
     Active Substance: CALCIUM GLUCONATE
     Dosage: OTHER QUANTITY : 1 G TOTAL ;?
     Route: 042

REACTIONS (4)
  - Product appearance confusion [None]
  - Wrong product stored [None]
  - Product label confusion [None]
  - Product packaging confusion [None]
